FAERS Safety Report 4335190-2 (Version None)
Quarter: 2004Q2

REPORT INFORMATION
  Report Type: 
  Country: None (occurrence: None)
  Receive Date: 20040408
  Receipt Date: 20040331
  Transmission Date: 20050107
  Serious: Yes (Other)
  Sender: FDA-Public Use
  Company Number: PHBS2004DE04442

PATIENT
  Age: 34 Year
  Sex: Male

DRUGS (3)
  1. CYCLOSPORINE [Suspect]
     Indication: PSORIATIC ARTHROPATHY
     Route: 065
  2. MYCOPHENOLATE MOFETIL [Suspect]
     Indication: PSORIATIC ARTHROPATHY
     Route: 065
  3. METHOTREXATE [Suspect]
     Indication: PSORIATIC ARTHROPATHY
     Route: 065

REACTIONS (1)
  - HYPERGAMMAGLOBULINAEMIA BENIGN MONOCLONAL [None]
